FAERS Safety Report 23088590 (Version 1)
Quarter: 2023Q4

REPORT INFORMATION
  Report Type: Report from Study
  Country: US (occurrence: US)
  Receive Date: 20231020
  Receipt Date: 20231020
  Transmission Date: 20240109
  Serious: Yes (Other)
  Sender: FDA-Public Use
  Company Number: US-BAYER-2023A143672

PATIENT

DRUGS (1)
  1. ALKA-SELTZER PLUS MAXIMUM STRENGTH DAY COLD AND FLU POWERMAX GELS [Suspect]
     Active Substance: ACETAMINOPHEN\DEXTROMETHORPHAN HYDROBROMIDE\PHENYLEPHRINE HYDROCHLORIDE
     Indication: Sinus disorder
     Route: 048

REACTIONS (2)
  - Choking [Recovered/Resolved]
  - Foreign body in throat [Recovered/Resolved]
